FAERS Safety Report 22096932 (Version 1)
Quarter: 2023Q1

REPORT INFORMATION
  Report Type: Spontaneous
  Country: GB (occurrence: GB)
  Receive Date: 20230315
  Receipt Date: 20230315
  Transmission Date: 20230417
  Serious: Yes (Other)
  Sender: FDA-Public Use
  Company Number: None

PATIENT
  Age: 85 Year

DRUGS (14)
  1. PAXLOVID [Suspect]
     Active Substance: NIRMATRELVIR\RITONAVIR
     Indication: COVID-19 treatment
     Dosage: [PF-07321332 300 MG]/[RITONAVIR 100 MG]; 2X/DAY
     Dates: start: 20220916, end: 20220921
  2. BRINZOLAMIDE [Concomitant]
     Active Substance: BRINZOLAMIDE
     Dosage: 10MG/ML
     Route: 050
  3. DOCUSATE [Concomitant]
     Active Substance: DOCUSATE
     Dosage: 100 MG, 2X/DAY
     Route: 048
  4. CALCIUM CARBONATE\CHOLECALCIFEROL [Concomitant]
     Active Substance: CALCIUM CARBONATE\CHOLECALCIFEROL
     Dosage: 1500MG/400UNIT
     Route: 048
  5. LATANOPROST [Concomitant]
     Active Substance: LATANOPROST
     Dosage: 50MICROGRAMS/ML
  6. OMEPRAZOLE [Concomitant]
     Active Substance: OMEPRAZOLE
     Dosage: 20 MG
     Route: 048
  7. OXYCODONE [Concomitant]
     Active Substance: OXYCODONE
     Indication: Pain
     Dosage: 5MG/5ML. 2.5ML - 5ML EVERY 4-6 HOURS AS REQUIRED FOR PAIN.
     Route: 048
  8. SIMVASTATIN [Concomitant]
     Active Substance: SIMVASTATIN
     Route: 048
  9. TIMOLOL [Concomitant]
     Active Substance: TIMOLOL
     Dosage: 5MG/ML
     Route: 050
  10. COMIRNATY [Concomitant]
     Active Substance: TOZINAMERAN
     Dosage: 30MICROGRAMS/0.3ML DOSE
     Route: 030
  11. PIPERACILLIN SODIUM\TAZOBACTAM SODIUM [Concomitant]
     Active Substance: PIPERACILLIN SODIUM\TAZOBACTAM SODIUM
     Dosage: TAKEN 13/09-16/09
  12. PIPERACILLIN SODIUM\TAZOBACTAM SODIUM [Concomitant]
     Active Substance: PIPERACILLIN SODIUM\TAZOBACTAM SODIUM
     Dosage: 18/09-25/09
  13. PIPERACILLIN SODIUM\TAZOBACTAM SODIUM [Concomitant]
     Active Substance: PIPERACILLIN SODIUM\TAZOBACTAM SODIUM
     Dosage: 29/09-30/09
  14. OXYCODONE HYDROCHLORIDE [Concomitant]
     Active Substance: OXYCODONE HYDROCHLORIDE
     Dosage: 5 MG, 2X/DAY
     Route: 048

REACTIONS (1)
  - Gastrointestinal haemorrhage [Unknown]
